FAERS Safety Report 21908828 (Version 2)
Quarter: 2023Q1

REPORT INFORMATION
  Report Type: Spontaneous
  Country: TR (occurrence: TR)
  Receive Date: 20230125
  Receipt Date: 20230220
  Transmission Date: 20230417
  Serious: Yes (Other)
  Sender: FDA-Public Use
  Company Number: TR-TEVA-2023-TR-2848608

PATIENT

DRUGS (2)
  1. GEMCITABINE [Suspect]
     Active Substance: GEMCITABINE
     Indication: Pancreatic carcinoma metastatic
     Dosage: IN 30 MINUTES ON DAYS 1, 8 AND 15; REPEATED EVERY 28 DAYS , 1000 MG/M2
     Route: 041
  2. PACLITAXEL [Suspect]
     Active Substance: PACLITAXEL
     Indication: Pancreatic carcinoma metastatic
     Dosage: IN 30 MINUTES ON DAYS 1, 8 AND 15; REPEATED EVERY 28 DAYS , 125 MG/M2
     Route: 065

REACTIONS (1)
  - Nephropathy toxic [Recovered/Resolved]
